FAERS Safety Report 9648260 (Version 1)
Quarter: 2013Q4

REPORT INFORMATION
  Report Type: Spontaneous
  Country: DE (occurrence: DE)
  Receive Date: 20131028
  Receipt Date: 20131028
  Transmission Date: 20140711
  Serious: Yes (Hospitalization)
  Sender: FDA-Public Use
  Company Number: DE-AMGEN-DEUSP2013074602

PATIENT
  Age: 46 Year
  Sex: Male

DRUGS (1)
  1. MIMPARA [Suspect]
     Indication: PRODUCT USED FOR UNKNOWN INDICATION
     Dosage: 30 UNK, UNK
     Route: 065

REACTIONS (2)
  - Blood pressure abnormal [Recovering/Resolving]
  - Dyspnoea [Recovering/Resolving]
